FAERS Safety Report 5713130-9 (Version None)
Quarter: 2008Q2

REPORT INFORMATION
  Report Type: 
  Country: None (occurrence: None)
  Receive Date: 20080422
  Receipt Date: 20070312
  Transmission Date: 20081010
  Serious: No
  Sender: FDA-Public Use
  Company Number: US-BRISTOL-MYERS SQUIBB COMPANY-13710959

PATIENT
  Age: 57 Year
  Sex: Female
  Weight: 82 kg

DRUGS (2)
  1. HYDROXYUREA [Suspect]
     Indication: ACCIDENTAL EXPOSURE
     Dates: start: 20060728
  2. ASCORBIC ACID [Concomitant]

REACTIONS (15)
  - ACCIDENTAL EXPOSURE [None]
  - ARTHRALGIA [None]
  - CONFUSIONAL STATE [None]
  - COUGH [None]
  - DIZZINESS [None]
  - DYSPNOEA [None]
  - HALLUCINATION [None]
  - HEADACHE [None]
  - INSOMNIA [None]
  - MEMORY IMPAIRMENT [None]
  - OBSESSIVE-COMPULSIVE DISORDER [None]
  - OEDEMA PERIPHERAL [None]
  - RASH [None]
  - RESTLESSNESS [None]
  - VISION BLURRED [None]
